FAERS Safety Report 8429732-5 (Version None)
Quarter: 2012Q2

REPORT INFORMATION
  Report Type: 
  Country: None (occurrence: None)
  Receive Date: 20120612
  Receipt Date: 20120605
  Transmission Date: 20120825
  Serious: Yes (Other)
  Sender: FDA-Public Use
  Company Number: NO-PFIZER INC-2012134608

PATIENT
  Age: 62 Year
  Sex: Male

DRUGS (3)
  1. EFFEXOR [Suspect]
     Dosage: 75 MG MORNING, 150 MG EVENING
  2. REMERON [Concomitant]
     Dosage: 60 MG, UNK
  3. OXAZEPAM [Concomitant]
     Dosage: 30 MG, UNK

REACTIONS (1)
  - LIPASE INCREASED [None]
